FAERS Safety Report 13011752 (Version 12)
Quarter: 2019Q2

REPORT INFORMATION
  Report Type: Report from Study
  Country: DE (occurrence: DE)
  Receive Date: 20161209
  Receipt Date: 20190619
  Transmission Date: 20190711
  Serious: Yes (Hospitalization, Other)
  Sender: FDA-Public Use
  Company Number: DE-INCYTE CORPORATION-2016IN007452

PATIENT

DRUGS (18)
  1. JAKAVI [Suspect]
     Active Substance: RUXOLITINIB
     Indication: POLYCYTHAEMIA VERA
     Dosage: 10 MG, BID
     Route: 048
     Dates: start: 20150828, end: 20160127
  2. SALBUTAMOL [Concomitant]
     Active Substance: ALBUTEROL
     Indication: CHRONIC OBSTRUCTIVE PULMONARY DISEASE
     Dosage: UNK
     Route: 055
     Dates: start: 20141204
  3. NOVALGIN [Concomitant]
     Indication: PAIN
     Dosage: UNK
     Route: 048
     Dates: start: 20160828
  4. BRETARIS GENUAIR [Concomitant]
     Active Substance: ACLIDINIUM BROMIDE
     Indication: CHRONIC OBSTRUCTIVE PULMONARY DISEASE
     Dosage: UNK
     Route: 055
     Dates: start: 20141204
  5. JAKAVI [Suspect]
     Active Substance: RUXOLITINIB
     Dosage: 5 MG, QD
     Route: 048
     Dates: start: 20161027, end: 20170215
  6. VALSARTAN. [Concomitant]
     Active Substance: VALSARTAN
     Indication: HYPERTENSION
     Dosage: 160 MG, UNK
     Route: 048
     Dates: start: 20150504
  7. JAKAVI [Suspect]
     Active Substance: RUXOLITINIB
     Dosage: 15 MG, BID
     Route: 048
     Dates: start: 20160128, end: 20160707
  8. XARELTO [Concomitant]
     Active Substance: RIVAROXABAN
     Indication: PROPHYLAXIS
     Dosage: 15 MG, UNK
     Route: 048
     Dates: start: 20160127
  9. METOPROLOL SUCCINATE. [Concomitant]
     Active Substance: METOPROLOL SUCCINATE
     Indication: HYPERTONIA
  10. METOPROLOL SUCCINATE. [Concomitant]
     Active Substance: METOPROLOL SUCCINATE
     Indication: HYPERTENSION
  11. PEGINTRON [Concomitant]
     Active Substance: PEGINTERFERON ALFA-2B
     Indication: POLYCYTHAEMIA VERA
     Dosage: 50 UG, UNK
     Route: 058
     Dates: start: 20170216
  12. JAKAVI [Suspect]
     Active Substance: RUXOLITINIB
     Dosage: 15 MG, BID
     Route: 048
     Dates: start: 20160711, end: 20160712
  13. FUROSEMIDE. [Concomitant]
     Active Substance: FUROSEMIDE
     Indication: HYPERURICAEMIA
     Dosage: 20 MG, UNK
     Route: 048
     Dates: start: 20141204
  14. METOPROLOL SUCCINATE. [Concomitant]
     Active Substance: METOPROLOL SUCCINATE
     Indication: HYPERTENSION
     Dosage: 190 MG, UNK
     Route: 048
     Dates: start: 20141204
  15. VALSARTAN. [Concomitant]
     Active Substance: VALSARTAN
     Indication: HYPERTONIA
  16. ALDACTONE [Concomitant]
     Active Substance: SPIRONOLACTONE
     Indication: HYPERURICAEMIA
     Dosage: 25 MG, UNK
     Route: 048
     Dates: start: 20150504
  17. JAKAVI [Suspect]
     Active Substance: RUXOLITINIB
     Dosage: 10 MG, BID
     Route: 048
     Dates: start: 20160726, end: 20161026
  18. TARGIN [Concomitant]
     Active Substance: NALOXONE HYDROCHLORIDE\OXYCODONE HYDROCHLORIDE
     Indication: PAIN
     Dosage: 10/5MG
     Route: 048
     Dates: start: 20160524

REACTIONS (7)
  - Leukocytosis [Not Recovered/Not Resolved]
  - Thrombocytosis [Recovering/Resolving]
  - Impaired healing [Unknown]
  - Peripheral arterial occlusive disease [Recovered/Resolved]
  - Blood potassium increased [Unknown]
  - Wound [Recovering/Resolving]
  - Chronic obstructive pulmonary disease [Not Recovered/Not Resolved]

NARRATIVE: CASE EVENT DATE: 20150901
